FAERS Safety Report 6943486-0 (Version None)
Quarter: 2010Q3

REPORT INFORMATION
  Report Type: 
  Country: None (occurrence: None)
  Receive Date: 20100826
  Receipt Date: 20100820
  Transmission Date: 20110219
  Serious: Yes (Death, Other)
  Sender: FDA-Public Use
  Company Number: CO-MPIJNJ-2010-04457

PATIENT

DRUGS (2)
  1. VELCADE [Suspect]
     Indication: MULTIPLE MYELOMA
     Dosage: UNK
     Dates: start: 20100601
  2. MELPHALAN [Concomitant]
     Indication: MULTIPLE MYELOMA

REACTIONS (2)
  - DEATH [None]
  - PNEUMONIA [None]
